FAERS Safety Report 4339894-7 (Version None)
Quarter: 2004Q2

REPORT INFORMATION
  Report Type: 
  Country: None (occurrence: None)
  Receive Date: 20040414
  Receipt Date: 20040414
  Transmission Date: 20050107
  Serious: Yes (Life-Threatening)
  Sender: FDA-Public Use
  Company Number: None

PATIENT
  Age: 52 Year
  Sex: Male
  Weight: 111.5 kg

DRUGS (2)
  1. UNASYN [Suspect]
     Indication: PANCREATITIS
     Dosage: 3 G IV Q 8 HR
     Route: 042
     Dates: start: 20040227, end: 20040302
  2. SOLU-MEDROL [Suspect]
     Dosage: 80 MG IV Q12-} Q24H
     Route: 042
     Dates: start: 20040302, end: 20040309

REACTIONS (2)
  - HAEMOLYTIC ANAEMIA [None]
  - THROMBOCYTOPENIA [None]
